FAERS Safety Report 10172372 (Version 1)
Quarter: 2014Q2

REPORT INFORMATION
  Report Type: Spontaneous
  Country: DE (occurrence: DE)
  Receive Date: 20140515
  Receipt Date: 20140515
  Transmission Date: 20141212
  Serious: Yes (Hospitalization)
  Sender: FDA-Public Use
  Company Number: DE-JNJFOC-20140506431

PATIENT
  Age: 71 Year
  Sex: Male

DRUGS (4)
  1. XARELTO [Suspect]
     Indication: PRODUCT USED FOR UNKNOWN INDICATION
     Route: 048
  2. CORIFEO [Concomitant]
     Route: 065
  3. BISOPROLOL [Concomitant]
     Route: 065
  4. CANDESARTAN CILEXETIL W/HYDROCHLOROTHIAZIDE [Concomitant]
     Route: 065

REACTIONS (3)
  - Cerebral haemorrhage [Unknown]
  - Malaise [Unknown]
  - Hypoaesthesia [Unknown]
